FAERS Safety Report 7981583-1 (Version None)
Quarter: 2011Q4

REPORT INFORMATION
  Report Type: 
  Country: None (occurrence: None)
  Receive Date: 20111213
  Receipt Date: 20111128
  Transmission Date: 20120403
  Serious: Yes (Other)
  Sender: FDA-Public Use
  Company Number: 1000019205

PATIENT
  Age: 75 Year
  Sex: Female
  Weight: 79 kg

DRUGS (11)
  1. ASS (ACETYLSALICYLIC ACID) (ACETYLSALICYLIC ACID) [Concomitant]
  2. FOSTER (PIROXICAM) (PIROXICAM) [Concomitant]
  3. APIDRA (INSULIN GLULISINE) (INSULIN GLULISINE) [Concomitant]
  4. LANTUS (INSULIN GLARGINE) (INSULIN GLARGINE) [Concomitant]
  5. EPROSARTAN (EPROSARTAN) (EPROSARTAN) [Concomitant]
  6. METFORMIN (METFORMIN) (850 MILLIGRAM) (METFORMIN) [Concomitant]
  7. THEOPHYLLINE [Concomitant]
  8. ROFLUMILAST (ROFLUMILAST) (TABLETS) [Suspect]
     Indication: CHRONIC OBSTRUCTIVE PULMONARY DISEASE
     Dosage: 500 MCG, ORAL
     Route: 048
     Dates: start: 20110211, end: 20110302
  9. SIMVASTATIN [Concomitant]
  10. APIDRA (INSULIN GLULISINE) (INSULIN GLULISINE) [Concomitant]
  11. HUMINSULIN (HUMAN MIXTARD) (HUMAN MIXTARD) [Concomitant]

REACTIONS (9)
  - DIZZINESS [None]
  - NAUSEA [None]
  - ACTIVITIES OF DAILY LIVING IMPAIRED [None]
  - LISTLESS [None]
  - ASTHENIA [None]
  - WEIGHT DECREASED [None]
  - DECREASED APPETITE [None]
  - VOMITING [None]
  - CARDIOVASCULAR INSUFFICIENCY [None]
